FAERS Safety Report 11894830 (Version 1)
Quarter: 2016Q1

REPORT INFORMATION
  Report Type: Spontaneous
  Country: US (occurrence: US)
  Receive Date: 20160107
  Receipt Date: 20160107
  Transmission Date: 20160526
  Serious: No
  Sender: FDA-Public Use
  Company Number: US-DRREDDYS-USA/USA/15/0049566

PATIENT
  Age: 62 Year
  Sex: Male

DRUGS (4)
  1. OMEPRAZOLE. [Concomitant]
     Active Substance: OMEPRAZOLE
     Indication: PRODUCT USED FOR UNKNOWN INDICATION
     Route: 065
  2. HABITROL [Suspect]
     Active Substance: NICOTINE
     Indication: ANXIETY
  3. PAROXETINE [Concomitant]
     Active Substance: PAROXETINE\PAROXETINE HYDROCHLORIDE
     Indication: ANXIETY
     Route: 048
  4. HABITROL [Suspect]
     Active Substance: NICOTINE
     Indication: SMOKING CESSATION THERAPY
     Route: 062
     Dates: end: 20150721

REACTIONS (6)
  - Chest discomfort [Not Recovered/Not Resolved]
  - Vocal cord thickening [Not Recovered/Not Resolved]
  - Nausea [Not Recovered/Not Resolved]
  - Feeling abnormal [Not Recovered/Not Resolved]
  - Anxiety [Not Recovered/Not Resolved]
  - Irritability [Not Recovered/Not Resolved]

NARRATIVE: CASE EVENT DATE: 201507
